FAERS Safety Report 16082010 (Version 1)
Quarter: 2019Q1

REPORT INFORMATION
  Report Type: Spontaneous
  Country: JP (occurrence: JP)
  Receive Date: 20190317
  Receipt Date: 20190317
  Transmission Date: 20190418
  Serious: Yes (Hospitalization)
  Sender: FDA-Public Use
  Company Number: JP-ACTELION-A-CH2019-187346

PATIENT
  Age: 63 Year
  Sex: Female

DRUGS (7)
  1. BOSENTAN. [Suspect]
     Active Substance: BOSENTAN
     Indication: PULMONARY ARTERIAL HYPERTENSION
     Route: 048
  2. BERAPROST [Concomitant]
     Active Substance: BERAPROST
  3. SILDENAFIL. [Concomitant]
     Active Substance: SILDENAFIL
  4. AMBRISENTAN [Concomitant]
     Active Substance: AMBRISENTAN
  5. OXYGEN. [Concomitant]
     Active Substance: OXYGEN
     Dosage: 4 L/MIN
  6. RIOCIGUAT. [Concomitant]
     Active Substance: RIOCIGUAT
  7. OXYGEN. [Concomitant]
     Active Substance: OXYGEN
     Dosage: 1 L/MIN

REACTIONS (4)
  - Arterial aneurysm repair [Unknown]
  - Catheterisation cardiac [Unknown]
  - Pulmonary artery therapeutic procedure [Unknown]
  - Dyspnoea [Unknown]
